FAERS Safety Report 7290120-9 (Version None)
Quarter: 2011Q1

REPORT INFORMATION
  Report Type: 
  Country: None (occurrence: None)
  Receive Date: 20110214
  Receipt Date: 20110208
  Transmission Date: 20110831
  Serious: Yes (Other)
  Sender: FDA-Public Use
  Company Number: US-AMGEN-USASP2011007573

PATIENT
  Age: 49 Year
  Sex: Female

DRUGS (3)
  1. NEUPOGEN [Suspect]
     Indication: CHEMOTHERAPY
  2. NEULASTA [Suspect]
     Indication: CHEMOTHERAPY
     Dates: start: 20110204
  3. TAXOL [Concomitant]

REACTIONS (2)
  - WRONG DRUG ADMINISTERED [None]
  - MEDICATION ERROR [None]
